FAERS Safety Report 6014283-8 (Version None)
Quarter: 2008Q4

REPORT INFORMATION
  Report Type: 
  Country: None (occurrence: None)
  Receive Date: 20081219
  Receipt Date: 20080321
  Transmission Date: 20090506
  Serious: No
  Sender: FDA-Public Use
  Company Number: A0716796A

PATIENT
  Age: 79 Year
  Sex: Male

DRUGS (3)
  1. AVODART [Suspect]
     Indication: BENIGN PROSTATIC HYPERPLASIA
     Dosage: 1CAP AT NIGHT
     Route: 048
     Dates: start: 20080228
  2. ATENOLOL [Concomitant]
  3. ARICEPT [Concomitant]

REACTIONS (3)
  - DRUG INEFFECTIVE [None]
  - FATIGUE [None]
  - INSOMNIA [None]
